FAERS Safety Report 15269034 (Version 1)
Quarter: 2018Q3

REPORT INFORMATION
  Report Type: Report from Study
  Country: US (occurrence: US)
  Receive Date: 20180813
  Receipt Date: 20180813
  Transmission Date: 20181010
  Serious: Yes (Hospitalization)
  Sender: FDA-Public Use
  Company Number: US-ROCHE-2152574

PATIENT
  Age: 82 Year
  Sex: Female

DRUGS (2)
  1. ACTEMRA [Suspect]
     Active Substance: TOCILIZUMAB
     Indication: TEMPORAL ARTERITIS
     Route: 058
     Dates: start: 20170713
  2. ACTEMRA [Suspect]
     Active Substance: TOCILIZUMAB
     Indication: VASCULITIS NECROTISING
     Route: 058

REACTIONS (10)
  - Fall [Unknown]
  - Nausea [Not Recovered/Not Resolved]
  - Urinary tract infection [Unknown]
  - Blood magnesium decreased [Recovered/Resolved]
  - Heart rate decreased [Recovered/Resolved]
  - Muscular weakness [Not Recovered/Not Resolved]
  - Hypophagia [Recovered/Resolved]
  - Blood pressure increased [Recovered/Resolved]
  - Arthralgia [Not Recovered/Not Resolved]
  - Pain [Unknown]

NARRATIVE: CASE EVENT DATE: 20180627
